FAERS Safety Report 7582017-1 (Version None)
Quarter: 2011Q2

REPORT INFORMATION
  Report Type: 
  Country: None (occurrence: None)
  Receive Date: 20110630
  Receipt Date: 20110623
  Transmission Date: 20111010
  Serious: No
  Sender: FDA-Public Use
  Company Number: US-BIOGENIDEC-2011BI001955

PATIENT
  Sex: Female

DRUGS (1)
  1. TYSABRI [Suspect]
     Indication: MULTIPLE SCLEROSIS
     Route: 042
     Dates: start: 20100915

REACTIONS (9)
  - FATIGUE [None]
  - FEELING COLD [None]
  - HAEMATOCRIT DECREASED [None]
  - IRON DEFICIENCY [None]
  - GASTRIC HAEMORRHAGE [None]
  - PYREXIA [None]
  - HAEMOGLOBIN DECREASED [None]
  - ANAEMIA [None]
  - RED BLOOD CELL COUNT DECREASED [None]
